FAERS Safety Report 25499329 (Version 2)
Quarter: 2025Q3

REPORT INFORMATION
  Report Type: Spontaneous
  Country: EU (occurrence: EU)
  Receive Date: 20250701
  Receipt Date: 20250708
  Transmission Date: 20251021
  Serious: Yes (Hospitalization, Other)
  Sender: AUROBINDO
  Company Number: EU-KERNPHARMA-202501729

PATIENT
  Age: 9 Year
  Sex: Female

DRUGS (24)
  1. SERTRALINE [Suspect]
     Active Substance: SERTRALINE HYDROCHLORIDE
     Indication: Attention deficit hyperactivity disorder
     Dosage: 150 MILLIGRAM, ONCE A DAY
     Route: 065
  2. SERTRALINE [Suspect]
     Active Substance: SERTRALINE HYDROCHLORIDE
     Indication: Self-destructive behaviour
  3. FLUOXETINE [Suspect]
     Active Substance: FLUOXETINE HYDROCHLORIDE
     Indication: Attention deficit hyperactivity disorder
     Route: 065
  4. FLUOXETINE [Suspect]
     Active Substance: FLUOXETINE HYDROCHLORIDE
     Indication: Self-destructive behaviour
  5. ARIPIPRAZOLE [Interacting]
     Active Substance: ARIPIPRAZOLE
     Indication: Attention deficit hyperactivity disorder
     Dosage: 10 MILLIGRAM, ONCE A DAY
     Route: 065
  6. ARIPIPRAZOLE [Interacting]
     Active Substance: ARIPIPRAZOLE
     Indication: Self-destructive behaviour
  7. TOPIRAMATE [Interacting]
     Active Substance: TOPIRAMATE
     Indication: Attention deficit hyperactivity disorder
     Dosage: 95 MILLIGRAM, ONCE A DAY
     Route: 065
  8. TOPIRAMATE [Interacting]
     Active Substance: TOPIRAMATE
     Indication: Self-destructive behaviour
  9. RISPERIDONE [Suspect]
     Active Substance: RISPERIDONE
     Indication: Attention deficit hyperactivity disorder
     Route: 065
  10. RISPERIDONE [Suspect]
     Active Substance: RISPERIDONE
     Indication: Self-destructive behaviour
  11. CLOZAPINE [Suspect]
     Active Substance: CLOZAPINE
     Indication: Attention deficit hyperactivity disorder
     Dosage: 150 MILLIGRAM, ONCE A DAY
     Route: 065
  12. CLOZAPINE [Suspect]
     Active Substance: CLOZAPINE
     Indication: Self-destructive behaviour
  13. CHLORPROMAZINE [Suspect]
     Active Substance: CHLORPROMAZINE
     Indication: Attention deficit hyperactivity disorder
     Route: 065
  14. CHLORPROMAZINE [Suspect]
     Active Substance: CHLORPROMAZINE
     Indication: Self-destructive behaviour
  15. NALMEFENE [Suspect]
     Active Substance: NALMEFENE
     Indication: Attention deficit hyperactivity disorder
     Route: 065
  16. NALMEFENE [Suspect]
     Active Substance: NALMEFENE
     Indication: Self-destructive behaviour
  17. VALPROATE [Suspect]
     Active Substance: VALPROIC ACID
     Indication: Attention deficit hyperactivity disorder
     Route: 065
  18. VALPROATE [Suspect]
     Active Substance: VALPROIC ACID
     Indication: Self-destructive behaviour
  19. METHYLPHENIDATE [Suspect]
     Active Substance: METHYLPHENIDATE
     Indication: Attention deficit hyperactivity disorder
     Route: 065
  20. METHYLPHENIDATE [Suspect]
     Active Substance: METHYLPHENIDATE
     Indication: Self-destructive behaviour
  21. GUANFACINE [Suspect]
     Active Substance: GUANFACINE
     Indication: Attention deficit hyperactivity disorder
     Route: 065
  22. GUANFACINE [Suspect]
     Active Substance: GUANFACINE
     Indication: Self-destructive behaviour
  23. CLOMIPRAMINE [Suspect]
     Active Substance: CLOMIPRAMINE
     Indication: Attention deficit hyperactivity disorder
     Route: 065
  24. CLOMIPRAMINE [Suspect]
     Active Substance: CLOMIPRAMINE
     Indication: Self-destructive behaviour

REACTIONS (7)
  - Attention deficit hyperactivity disorder [Unknown]
  - Self-destructive behaviour [Unknown]
  - Condition aggravated [Unknown]
  - Drug ineffective [Unknown]
  - Off label use [Unknown]
  - Inhibitory drug interaction [Unknown]
  - Therapy partial responder [Unknown]
